FAERS Safety Report 21733797 (Version 1)
Quarter: 2022Q4

REPORT INFORMATION
  Report Type: Spontaneous
  Country: US (occurrence: None)
  Receive Date: 20221215
  Receipt Date: 20221215
  Transmission Date: 20230113
  Serious: Yes (Hospitalization, Other)
  Sender: FDA-Public Use
  Company Number: US-ADIENNEP-2022AD001060

PATIENT
  Sex: Male

DRUGS (5)
  1. THIOTEPA [Suspect]
     Active Substance: THIOTEPA
     Indication: Allogenic stem cell transplantation
     Dosage: 8 MG/KG/DAY D-7
  2. FLUDARABINE [Suspect]
     Active Substance: FLUDARABINE PHOSPHATE
     Indication: Allogenic stem cell transplantation
     Dosage: 30 MG/M2/DAY D-11 TO D-7
  3. THYMOCYTE IMMUNE GLOBULIN NOS [Suspect]
     Active Substance: THYMOCYTE IMMUNE GLOBULIN NOS
     Indication: Allogenic stem cell transplantation
     Dosage: 2.5 MG/KG/DAY D-5 TO D-2
  4. MELPHALAN [Suspect]
     Active Substance: MELPHALAN
     Indication: Allogenic stem cell transplantation
     Dosage: 140 MG/M2/DAY D-6
  5. RITUXIMAB [Suspect]
     Active Substance: RITUXIMAB
     Indication: Allogenic stem cell transplantation
     Dosage: 375 MG/M2/DAY D-12

REACTIONS (16)
  - Venoocclusive liver disease [Unknown]
  - Acute graft versus host disease [Unknown]
  - Hypogammaglobulinaemia [Unknown]
  - Clostridium difficile colitis [Unknown]
  - Viraemia [Unknown]
  - Human herpesvirus 6 infection [Unknown]
  - Metapneumovirus infection [Unknown]
  - Viral upper respiratory tract infection [Unknown]
  - Enterovirus infection [Unknown]
  - Enteritis [Unknown]
  - Staphylococcal infection [Unknown]
  - Clostridium difficile infection [Unknown]
  - Pancytopenia [Unknown]
  - Multisystem inflammatory syndrome in children [Recovered/Resolved]
  - Epstein-Barr virus infection [Unknown]
  - Asymptomatic COVID-19 [Recovered/Resolved]
